FAERS Safety Report 5050865-8 (Version None)
Quarter: 2006Q3

REPORT INFORMATION
  Report Type: 
  Country: None (occurrence: None)
  Receive Date: 20060710
  Receipt Date: 20060623
  Transmission Date: 20061208
  Serious: Yes (Hospitalization)
  Sender: FDA-Public Use
  Company Number: 2006083593

PATIENT
  Age: 3 Year
  Sex: Male

DRUGS (2)
  1. CETIRIZINE HCL [Suspect]
  2. KETOTIFEN (KETOTIFEN) [Suspect]
     Dosage: ORAL
     Route: 048
     Dates: end: 20060606

REACTIONS (3)
  - HALLUCINATION [None]
  - NIGHTMARE [None]
  - PARASOMNIA [None]
